FAERS Safety Report 4930000-4 (Version None)
Quarter: 2006Q1

REPORT INFORMATION
  Report Type: 
  Country: None (occurrence: None)
  Receive Date: 20060302
  Receipt Date: 20060215
  Transmission Date: 20060701
  Serious: Yes (Hospitalization, Other)
  Sender: FDA-Public Use
  Company Number: PHBS2006IL02720

PATIENT

DRUGS (3)
  1. SANDOSTATIN [Suspect]
     Indication: CHYLOTHORAX
     Dosage: 60 UG/KG/DAY
  2. SANDOSTATIN [Suspect]
  3. SANDOSTATIN [Suspect]

REACTIONS (6)
  - BLOOD THYROID STIMULATING HORMONE INCREASED [None]
  - ENTEROBACTER SEPSIS [None]
  - PRIMARY HYPOTHYROIDISM [None]
  - THYROGLOBULIN INCREASED [None]
  - THYROXINE DECREASED [None]
  - TRI-IODOTHYRONINE INCREASED [None]
